FAERS Safety Report 9283481 (Version 1)
Quarter: 2013Q2

REPORT INFORMATION
  Report Type: Spontaneous
  Country: DE (occurrence: DE)
  Receive Date: 20130510
  Receipt Date: 20130510
  Transmission Date: 20140414
  Serious: Yes (Other)
  Sender: FDA-Public Use
  Company Number: GXKR2013DE001732

PATIENT
  Sex: Male
  Weight: 34.1 kg

DRUGS (1)
  1. OMNITROPE [Suspect]
     Indication: MICROSOMIA
     Dosage: 1.15 MG/DAY
     Route: 058
     Dates: start: 201202

REACTIONS (1)
  - Osteochondrosis [Not Recovered/Not Resolved]
